FAERS Safety Report 11379485 (Version 1)
Quarter: 2015Q3

REPORT INFORMATION
  Report Type: Spontaneous
  Country: US (occurrence: US)
  Receive Date: 20150814
  Receipt Date: 20150814
  Transmission Date: 20151125
  Serious: No
  Sender: FDA-Public Use
  Company Number: US-ASTRAZENECA-2015SE63359

PATIENT
  Age: 63 Year
  Sex: Male
  Weight: 103 kg

DRUGS (3)
  1. BYDUREON [Suspect]
     Active Substance: EXENATIDE
     Indication: TYPE 2 DIABETES MELLITUS
     Dosage: 2 MG/0.45 ML ONE INJECTION WEEKLY
     Route: 058
     Dates: start: 20150620
  2. BYDUREON [Suspect]
     Active Substance: EXENATIDE
     Indication: TYPE 2 DIABETES MELLITUS
     Dosage: 2 MG/0.45 ML ONE INJECTION WEEKLY
     Route: 058
     Dates: start: 20150704, end: 20150704
  3. BYDUREON [Suspect]
     Active Substance: EXENATIDE
     Indication: TYPE 2 DIABETES MELLITUS
     Dosage: 2 MG/0.45 ML ONE INJECTION WEEKLY
     Route: 058
     Dates: start: 20150627

REACTIONS (4)
  - Urticaria [Recovering/Resolving]
  - Induration [Recovering/Resolving]
  - Injection site urticaria [Unknown]
  - Injection site inflammation [Recovering/Resolving]

NARRATIVE: CASE EVENT DATE: 20150610
